FAERS Safety Report 23532075 (Version 1)
Quarter: 2024Q1

REPORT INFORMATION
  Report Type: Report from Study
  Country: DO (occurrence: DO)
  Receive Date: 20240216
  Receipt Date: 20240216
  Transmission Date: 20240410
  Serious: Yes (Other)
  Sender: FDA-Public Use
  Company Number: DO-JNJFOC-20231230818

PATIENT
  Age: 67 Year
  Sex: Female
  Weight: 64 kg

DRUGS (1)
  1. IMBRUVICA [Suspect]
     Active Substance: IBRUTINIB
     Indication: Chronic lymphocytic leukaemia
     Dosage: 1 TABLET
     Route: 048
     Dates: start: 20220801

REACTIONS (3)
  - Diabetes mellitus [Unknown]
  - Skin ulcer [Unknown]
  - Nail disorder [Unknown]

NARRATIVE: CASE EVENT DATE: 20231101
